FAERS Safety Report 5725447-2 (Version None)
Quarter: 2008Q2

REPORT INFORMATION
  Report Type: 
  Country: None (occurrence: None)
  Receive Date: 20080501
  Receipt Date: 20080425
  Transmission Date: 20081010
  Serious: Yes (Hospitalization)
  Sender: FDA-Public Use
  Company Number: FR-ASTRAZENECA-2008CG00647

PATIENT
  Age: 21606 Day
  Sex: Female

DRUGS (6)
  1. OMEPRAZOLE [Suspect]
     Indication: PROPHYLAXIS
     Route: 048
  2. ENBREL [Suspect]
     Indication: RHEUMATOID ARTHRITIS
     Route: 058
     Dates: start: 20050101
  3. METHOTREXATE SODIUM [Suspect]
     Indication: RHEUMATOID ARTHRITIS
     Route: 048
     Dates: start: 20050101
  4. CORTANCYL [Suspect]
     Indication: RHEUMATOID ARTHRITIS
     Route: 048
  5. VOLTAREN [Suspect]
     Indication: RHEUMATOID ARTHRITIS
     Route: 048
  6. IRBESARTAN [Suspect]
     Indication: HYPERTENSION
     Route: 048

REACTIONS (3)
  - HYPERTHERMIA [None]
  - MALAISE [None]
  - THROMBOCYTOPENIA [None]
